FAERS Safety Report 11727577 (Version 2)
Quarter: 2017Q1

REPORT INFORMATION
  Report Type: Spontaneous
  Country: US (occurrence: US)
  Receive Date: 20151112
  Receipt Date: 20170317
  Transmission Date: 20170428
  Serious: Yes (Other)
  Sender: FDA-Public Use
  Company Number: US-ELI_LILLY_AND_COMPANY-US201511001050

PATIENT
  Sex: Female

DRUGS (2)
  1. CYMBALTA [Suspect]
     Active Substance: DULOXETINE HYDROCHLORIDE
     Indication: PAIN
     Dosage: 30 MG, QD
     Route: 065
     Dates: start: 20130827
  2. CYMBALTA [Suspect]
     Active Substance: DULOXETINE HYDROCHLORIDE
     Indication: DEPRESSION
     Dosage: 60 MG, QD
     Route: 065

REACTIONS (37)
  - Tremor [Unknown]
  - Deafness [Unknown]
  - Agitation [Unknown]
  - Affect lability [Unknown]
  - Visual impairment [Unknown]
  - Dyskinesia [Unknown]
  - Psychiatric symptom [Unknown]
  - Swelling [Unknown]
  - Confusional state [Unknown]
  - Nausea [Unknown]
  - Vertigo [Unknown]
  - Drug withdrawal syndrome [Unknown]
  - Parosmia [Unknown]
  - Mental disorder [Unknown]
  - Dizziness [Unknown]
  - Vomiting [Unknown]
  - Fatigue [Unknown]
  - Paraesthesia [Unknown]
  - Seizure [Unknown]
  - Anxiety [Unknown]
  - Insomnia [Unknown]
  - Panic attack [Unknown]
  - Hallucination [Unknown]
  - Disturbance in attention [Unknown]
  - Headache [Unknown]
  - Asthenia [Unknown]
  - Migraine [Unknown]
  - Memory impairment [Unknown]
  - Psychotic disorder [Unknown]
  - Dehydration [Unknown]
  - Aggression [Unknown]
  - Back pain [Unknown]
  - Pain in extremity [Unknown]
  - Nightmare [Unknown]
  - Sleep disorder [Unknown]
  - Middle ear effusion [Unknown]
  - Sensory disturbance [Unknown]
